FAERS Safety Report 10776512 (Version 1)
Quarter: 2015Q1

REPORT INFORMATION
  Report Type: Spontaneous
  Country: US (occurrence: None)
  Receive Date: 20150205
  Receipt Date: 20150205
  Transmission Date: 20150721
  Serious: Yes (Other)
  Sender: FDA-Public Use
  Company Number: None

PATIENT
  Age: 61 Year
  Sex: Female
  Weight: 68.04 kg

DRUGS (9)
  1. CALCIUM [Concomitant]
     Active Substance: CALCIUM
  2. MAGNESIUM [Concomitant]
     Active Substance: MAGNESIUM
  3. CLONIDINE. [Concomitant]
     Active Substance: CLONIDINE
  4. MULTIPLE VITAMIN [Concomitant]
     Active Substance: VITAMINS
  5. FISH OIL [Concomitant]
     Active Substance: FISH OIL
  6. LINZESS [Suspect]
     Active Substance: LINACLOTIDE
     Indication: CONSTIPATION
     Dosage: 30 CAPSULE DAILY  DAILY 30 MIN BEFORE BREAKFAST  MOUTH, 30 MIN. PRIOR TO MEAL
     Dates: start: 20150123, end: 20150125
  7. TAMOXIFEN [Concomitant]
     Active Substance: TAMOXIFEN
  8. VITAMIN E [Concomitant]
     Active Substance: .ALPHA.-TOCOPHEROL
  9. DIOVAN [Concomitant]
     Active Substance: VALSARTAN

REACTIONS (3)
  - Abdominal pain lower [None]
  - Abdominal pain upper [None]
  - Nausea [None]

NARRATIVE: CASE EVENT DATE: 20150124
